FAERS Safety Report 24042481 (Version 2)
Quarter: 2024Q3

REPORT INFORMATION
  Report Type: Spontaneous
  Country: FR (occurrence: FR)
  Receive Date: 20240702
  Receipt Date: 20240711
  Transmission Date: 20241017
  Serious: Yes (Life-Threatening)
  Sender: MYLAN
  Company Number: None

PATIENT
  Age: 77 Year
  Sex: Male

DRUGS (12)
  1. MIDAZOLAM HYDROCHLORIDE [Interacting]
     Active Substance: MIDAZOLAM HYDROCHLORIDE
     Indication: Anxiety
     Dosage: 0.4 MILLIGRAM, QH
     Route: 042
     Dates: start: 20240427
  2. FLUCONAZOLE [Interacting]
     Active Substance: FLUCONAZOLE
     Indication: Fungal infection
     Dosage: 100 MILLIGRAM, QD
     Route: 048
     Dates: start: 20240430
  3. CHLORPROMAZINE [Interacting]
     Active Substance: CHLORPROMAZINE
     Indication: Product used for unknown indication
     Dosage: 1 DOSAGE FORM, QD
     Route: 065
     Dates: start: 20240424, end: 20240503
  4. OXYCODONE HYDROCHLORIDE [Interacting]
     Active Substance: OXYCODONE HYDROCHLORIDE
     Indication: Pain
     Dosage: 0.5 MILLIGRAM, QH
     Route: 042
     Dates: start: 20240424, end: 20240504
  5. KETAMINE [Concomitant]
     Active Substance: KETAMINE
     Dosage: 50 MILLIGRAM, QD
     Route: 042
     Dates: start: 20240425, end: 20240502
  6. ZYPREXA [Concomitant]
     Active Substance: OLANZAPINE
     Dosage: 1 DOSAGE FORM, QD
     Route: 048
     Dates: start: 20240502
  7. DEPAKOTE [Concomitant]
     Active Substance: DIVALPROEX SODIUM
     Dosage: 1 GRAM, QD
     Route: 048
     Dates: start: 20240502
  8. ENOXAPARIN SODIUM [Concomitant]
     Active Substance: ENOXAPARIN SODIUM
     Dosage: 4000 INTERNATIONAL UNIT, QD
     Route: 058
     Dates: start: 20240426
  9. TROPATEPINE HYDROCHLORIDE [Concomitant]
     Active Substance: TROPATEPINE HYDROCHLORIDE
     Dosage: 1 DOSAGE FORM, QD
     Route: 048
     Dates: start: 20240502
  10. MORPHINE [Concomitant]
     Active Substance: MORPHINE
     Dosage: 6 MILLIGRAM, QD
     Route: 042
     Dates: start: 20240423, end: 20240423
  11. PIPERACILLIN SODIUM\TAZOBACTAM SODIUM [Concomitant]
     Active Substance: PIPERACILLIN SODIUM\TAZOBACTAM SODIUM
     Dosage: 12 GRAM, QD
     Route: 042
     Dates: start: 20240424
  12. BIMATOPROST\TIMOLOL [Concomitant]
     Active Substance: BIMATOPROST\TIMOLOL
     Dosage: 2 DOSAGE FORM, QD
     Route: 047
     Dates: start: 20240503

REACTIONS (1)
  - Drug interaction [Not Recovered/Not Resolved]

NARRATIVE: CASE EVENT DATE: 20240430
